FAERS Safety Report 17124473 (Version 1)
Quarter: 2019Q4

REPORT INFORMATION
  Report Type: Spontaneous
  Country: US (occurrence: US)
  Receive Date: 20191206
  Receipt Date: 20191206
  Transmission Date: 20200122
  Serious: No
  Sender: FDA-Public Use
  Company Number: US-NOVOPROD-662644

PATIENT
  Sex: Female

DRUGS (2)
  1. NOVOLIN 70/30 [Suspect]
     Active Substance: INSULIN HUMAN
     Indication: TYPE 1 DIABETES MELLITUS
     Dosage: 5 IU, BID(IN MORNING AND EVENING)
     Route: 058
     Dates: start: 20190501
  2. NOVOLIN 70/30 [Suspect]
     Active Substance: INSULIN HUMAN
     Dosage: DOSE INCREASED
     Route: 058

REACTIONS (6)
  - Vomiting [Recovered/Resolved]
  - Malaise [Recovered/Resolved]
  - Depressed mood [Unknown]
  - Blood glucose increased [Not Recovered/Not Resolved]
  - Asthenia [Recovered/Resolved]
  - Nausea [Recovered/Resolved]

NARRATIVE: CASE EVENT DATE: 20190501
